FAERS Safety Report 9369515 (Version 2)
Quarter: 2013Q3

REPORT INFORMATION
  Report Type: Spontaneous
  Country: US (occurrence: US)
  Receive Date: 20130626
  Receipt Date: 20130715
  Transmission Date: 20140515
  Serious: No
  Sender: FDA-Public Use
  Company Number: US-PFIZER INC-2013186442

PATIENT
  Sex: Female

DRUGS (3)
  1. LEVOXYL [Suspect]
     Dosage: UNK
     Dates: start: 1992
  2. LEVOTHYROXINE SODIUM [Suspect]
     Dosage: UNK
  3. SYNTHROID [Suspect]
     Dosage: UNK

REACTIONS (2)
  - Dry mouth [Unknown]
  - Arthralgia [Unknown]
